FAERS Safety Report 9763171 (Version 1)
Quarter: 2013Q4

REPORT INFORMATION
  Report Type: Spontaneous
  Country: US (occurrence: US)
  Receive Date: 20131216
  Receipt Date: 20131216
  Transmission Date: 20140711
  Serious: No
  Sender: FDA-Public Use
  Company Number: US-BIOGENIDEC-2013BI106004

PATIENT
  Age: 61 Year
  Sex: Female

DRUGS (6)
  1. TECFIDERA [Suspect]
     Indication: MULTIPLE SCLEROSIS
     Route: 048
     Dates: start: 201309
  2. VITAMIN B12 [Concomitant]
  3. FLOVENT [Concomitant]
  4. RITALIN [Concomitant]
  5. LYRICA [Concomitant]
  6. OMEPRAZOLE [Concomitant]

REACTIONS (1)
  - Flushing [Recovered/Resolved]
